FAERS Safety Report 4376006-8 (Version None)
Quarter: 2004Q2

REPORT INFORMATION
  Report Type: 
  Country: None (occurrence: None)
  Receive Date: 20040609
  Receipt Date: 20040609
  Transmission Date: 20050107
  Serious: Yes (Death)
  Sender: FDA-Public Use
  Company Number: None

PATIENT
  Age: 36 Year
  Sex: Male
  Weight: 91.173 kg

DRUGS (1)
  1. LARIAM [Suspect]
     Indication: MALARIA PROPHYLAXIS
     Dosage: WEEKLY 2/03-} 12/03

REACTIONS (5)
  - AGGRESSION [None]
  - COMPLETED SUICIDE [None]
  - INCOHERENT [None]
  - PHYSICAL ASSAULT [None]
  - PSYCHOTIC DISORDER [None]
